FAERS Safety Report 5186327-7 (Version None)
Quarter: 2006Q4

REPORT INFORMATION
  Report Type: 
  Country: None (occurrence: None)
  Receive Date: 20061220
  Receipt Date: 20061114
  Transmission Date: 20070319
  Serious: Yes (Death, Life-Threatening)
  Sender: FDA-Public Use
  Company Number: JP-ELI_LILLY_AND_COMPANY-JP200611003292

PATIENT
  Age: 68 Year
  Sex: Male
  Weight: 60 kg

DRUGS (10)
  1. GEMZAR [Suspect]
     Indication: LUNG ADENOCARCINOMA STAGE III
     Dosage: 1000 MG/M2, OTHER
     Route: 042
     Dates: start: 20060706, end: 20060914
  2. MAGNESIUM OXIDE [Concomitant]
     Dosage: 0.67 G, 3/D
     Route: 048
     Dates: start: 20060713
  3. PURSENNID /SCH/ [Concomitant]
     Dosage: 24 MG, DAILY (1/D)
     Route: 048
     Dates: start: 20060707
  4. MARZULENE S [Concomitant]
     Dosage: 0.67 G, 2/D
     Route: 048
     Dates: start: 20060708
  5. LOXONIN [Concomitant]
     Dosage: 60 MG, 3/D
     Route: 048
     Dates: start: 20060706
  6. PARIET                                  /JPN/ [Concomitant]
     Dosage: 1 CAPSULE, DAILY (1/D)
     Route: 048
     Dates: start: 20060708
  7. MYSLEE [Concomitant]
     Dosage: 1 TABLET, DAILY (1/D)
     Route: 048
     Dates: start: 20060802, end: 20060918
  8. ISODINE [Concomitant]
     Dosage: UNK, UNKNOWN
     Dates: start: 20060720, end: 20060918
  9. CYANOCOBALAMIN [Concomitant]
     Dosage: 1 TABLET, 3/D
     Route: 048
     Dates: start: 20060904
  10. FLOMOX [Concomitant]
     Dosage: 3 TABLETS, DAILY (1/D)
     Route: 048
     Dates: start: 20060919, end: 20060921

REACTIONS (3)
  - HAEMOGLOBIN DECREASED [None]
  - INTERSTITIAL LUNG DISEASE [None]
  - LYMPHANGIOSIS CARCINOMATOSA [None]
